FAERS Safety Report 22901165 (Version 2)
Quarter: 2024Q3

REPORT INFORMATION
  Report Type: Spontaneous
  Country: FR (occurrence: FR)
  Receive Date: 20230904
  Receipt Date: 20240820
  Transmission Date: 20241017
  Serious: Yes (Death, Congenital Anomaly)
  Sender: ACCORD
  Company Number: None

PATIENT
  Age: 20 Week
  Sex: Male
  Weight: 0.4564 kg

DRUGS (3)
  1. CAPECITABINE [Suspect]
     Active Substance: CAPECITABINE
     Indication: Breast cancer
     Dates: start: 2020
  2. TRASTUZUMAB [Suspect]
     Active Substance: TRASTUZUMAB
     Indication: Breast cancer
     Dates: start: 2020
  3. TUCATINIB [Suspect]
     Active Substance: TUCATINIB
     Indication: Breast cancer
     Dates: start: 2020

REACTIONS (8)
  - Hypertelorism [Fatal]
  - Dysmorphism [Fatal]
  - Polydactyly [Fatal]
  - Congenital pulmonary airway malformation [Fatal]
  - Ear malformation [Fatal]
  - Nose deformity [Fatal]
  - Abortion induced [Fatal]
  - Foetal exposure during pregnancy [Unknown]
